FAERS Safety Report 6537690-3 (Version None)
Quarter: 2010Q1

REPORT INFORMATION
  Report Type: 
  Country: None (occurrence: None)
  Receive Date: 20100114
  Receipt Date: 20100104
  Transmission Date: 20100710
  Serious: Yes (Death, Other)
  Sender: FDA-Public Use
  Company Number: SE-SANOFI-AVENTIS-2009SA011520

PATIENT
  Age: 65 Year
  Sex: Male

DRUGS (7)
  1. ELIGARD [Suspect]
     Indication: PROSTATE CANCER
     Route: 058
     Dates: start: 20080416, end: 20080416
  2. ELIGARD [Suspect]
     Route: 058
     Dates: start: 20080919, end: 20080919
  3. BETAMETHASONE SODIUM PHOSPHATE [Concomitant]
  4. OMEPRAZOLE SODIUM [Concomitant]
  5. ZOPICLONE [Concomitant]
  6. PARACETAMOL [Concomitant]
  7. TRAMADOL HYDROCHLORIDE [Concomitant]

REACTIONS (3)
  - DRUG INEFFECTIVE [None]
  - METASTASES TO CENTRAL NERVOUS SYSTEM [None]
  - PROSTATE CANCER METASTATIC [None]
